FAERS Safety Report 6247871-4 (Version None)
Quarter: 2009Q2

REPORT INFORMATION
  Report Type: 
  Country: None (occurrence: None)
  Receive Date: 20090626
  Receipt Date: 20090615
  Transmission Date: 20091009
  Serious: No
  Sender: FDA-Public Use
  Company Number: US-TYCO HEALTHCARE/MALLINCKRODT-T200901203

PATIENT
  Sex: Female

DRUGS (6)
  1. TUSSICAPS EXTENDED-RELEASE [Suspect]
     Indication: COUGH
     Dosage: ONE TABLET
  2. FOLIC ACID [Concomitant]
     Dosage: UNK
  3. ACTONEL [Concomitant]
     Dosage: UNK
  4. FISH OIL [Concomitant]
     Dosage: UNK
  5. MULTIVITAMIN                       /00831701/ [Concomitant]
     Dosage: UNK
  6. LOVAZA [Concomitant]
     Dosage: UNK

REACTIONS (2)
  - URTICARIA [None]
  - VOMITING [None]
